FAERS Safety Report 8436207-6 (Version None)
Quarter: 2012Q2

REPORT INFORMATION
  Report Type: 
  Country: None (occurrence: None)
  Receive Date: 20120607
  Receipt Date: 20120607
  Transmission Date: 20120825
  Serious: Yes (Other)
  Sender: FDA-Public Use
  Company Number: None

PATIENT
  Age: 38 Year
  Sex: Male
  Weight: 58.9676 kg

DRUGS (2)
  1. HUMIRA [Suspect]
     Indication: PSORIASIS
     Dosage: 40 MG EVERY 2 WEEKS
     Dates: start: 20090601, end: 20120413
  2. HUMIRA [Suspect]
     Indication: JOINT ANKYLOSIS
     Dosage: 40 MG EVERY 2 WEEKS
     Dates: start: 20090601, end: 20120413

REACTIONS (5)
  - GRAND MAL CONVULSION [None]
  - PAROSMIA [None]
  - HEADACHE [None]
  - DIZZINESS [None]
  - NAUSEA [None]
